FAERS Safety Report 7266139-0 (Version None)
Quarter: 2011Q1

REPORT INFORMATION
  Report Type: 
  Country: None (occurrence: None)
  Receive Date: 20110131
  Receipt Date: 20110127
  Transmission Date: 20110831
  Serious: Yes (Life-Threatening, Hospitalization)
  Sender: FDA-Public Use
  Company Number: US-B.I. PHARMACEUTICALS,INC./RIDGEFIELD-2010-BP-14887BP

PATIENT
  Sex: Male

DRUGS (2)
  1. PRADAXA [Suspect]
     Dosage: 300 MG
     Route: 048
     Dates: start: 20101201, end: 20101214
  2. VANTIN [Concomitant]

REACTIONS (8)
  - INTERNATIONAL NORMALISED RATIO INCREASED [None]
  - TOXICITY TO VARIOUS AGENTS [None]
  - HAEMOPTYSIS [None]
  - EPISTAXIS [None]
  - PULMONARY EMBOLISM [None]
  - FUNGAL INFECTION [None]
  - ANAEMIA [None]
  - PULMONARY HAEMORRHAGE [None]
